FAERS Safety Report 11813685 (Version 1)
Quarter: 2015Q4

REPORT INFORMATION
  Report Type: Spontaneous
  Country: US (occurrence: None)
  Receive Date: 20151208
  Receipt Date: 20151208
  Transmission Date: 20160305
  Serious: Yes (Hospitalization)
  Sender: FDA-Public Use
  Company Number: None

PATIENT
  Age: 69 Year
  Sex: Male
  Weight: 66 kg

DRUGS (1)
  1. LENALIDOMIDE (CC-5013) [Suspect]
     Active Substance: LENALIDOMIDE
     Dates: end: 20151117

REACTIONS (5)
  - Hypotension [None]
  - Neutropenia [None]
  - Diarrhoea [None]
  - Sepsis [None]
  - Bacteraemia [None]

NARRATIVE: CASE EVENT DATE: 20151122
